FAERS Safety Report 6731392-6 (Version None)
Quarter: 2010Q2

REPORT INFORMATION
  Report Type: 
  Country: None (occurrence: None)
  Receive Date: 20100518
  Receipt Date: 20100518
  Transmission Date: 20101027
  Serious: Yes (Hospitalization)
  Sender: FDA-Public Use
  Company Number: None

PATIENT
  Age: 57 Year
  Sex: Male
  Weight: 97.98 kg

DRUGS (2)
  1. ATENOLOL [Suspect]
     Indication: HYPERTENSION
     Dosage: 25 MG EVERY DAY PO
     Route: 048
     Dates: start: 20100412, end: 20100515
  2. ATENOLOL [Suspect]
     Indication: TACHYCARDIA
     Dosage: 25 MG EVERY DAY PO
     Route: 048
     Dates: start: 20100412, end: 20100515

REACTIONS (2)
  - BRADYCARDIA [None]
  - DIZZINESS [None]
